FAERS Safety Report 6868836-5 (Version None)
Quarter: 2010Q3

REPORT INFORMATION
  Report Type: 
  Country: None (occurrence: None)
  Receive Date: 20100722
  Receipt Date: 20080616
  Transmission Date: 20110219
  Serious: No
  Sender: FDA-Public Use
  Company Number: US-PFIZER INC-2008051480

PATIENT
  Sex: Female
  Weight: 74.84 kg

DRUGS (1)
  1. CHANTIX [Suspect]
     Indication: SMOKING CESSATION THERAPY
     Dates: start: 20080430

REACTIONS (9)
  - ABDOMINAL TENDERNESS [None]
  - ABNORMAL DREAMS [None]
  - CONSTIPATION [None]
  - FLATULENCE [None]
  - GINGIVAL BLEEDING [None]
  - GINGIVAL PAIN [None]
  - NAUSEA [None]
  - POOR QUALITY SLEEP [None]
  - WEIGHT INCREASED [None]
